FAERS Safety Report 9681255 (Version 2)
Quarter: 2013Q4

REPORT INFORMATION
  Report Type: Spontaneous
  Country: US (occurrence: US)
  Receive Date: 20131111
  Receipt Date: 20131111
  Transmission Date: 20140711
  Serious: Yes (Hospitalization)
  Sender: FDA-Public Use
  Company Number: US-B.I. PHARMACEUTICALS,INC./RIDGEFIELD-2013-BI-14537BP

PATIENT
  Sex: Female
  Weight: 63.5 kg

DRUGS (9)
  1. PRADAXA [Suspect]
     Indication: ANTICOAGULANT THERAPY
     Route: 048
     Dates: start: 20110901, end: 20120920
  2. PRADAXA [Suspect]
     Indication: ATRIAL FIBRILLATION
  3. CARVEDILOL [Concomitant]
     Dosage: 50 MG
     Route: 048
  4. LOSARTAN [Concomitant]
     Dosage: 100 MG
     Route: 048
  5. MAPROXEN [Concomitant]
     Dosage: 1000 MG
     Route: 048
  6. RANITIDINE [Concomitant]
     Route: 048
  7. AMIODARONE [Concomitant]
     Dosage: 10 MG
     Route: 048
  8. COMBIVENT [Concomitant]
     Dosage: 4 PUF
     Route: 055
  9. ALBUTEROL [Concomitant]
     Dosage: 4 PUF
     Route: 055

REACTIONS (6)
  - Gastrointestinal haemorrhage [Unknown]
  - Anaemia [Unknown]
  - Peptic ulcer [Unknown]
  - Gastritis [Unknown]
  - Duodenitis [Unknown]
  - Gastrointestinal angiodysplasia [Unknown]
